FAERS Safety Report 9528931 (Version 1)
Quarter: 2013Q3

REPORT INFORMATION
  Report Type: Report from Study
  Country: CN (occurrence: CN)
  Receive Date: 20130917
  Receipt Date: 20130917
  Transmission Date: 20140515
  Serious: Yes (Life-Threatening)
  Sender: FDA-Public Use
  Company Number: CN-ASTRAZENECA-2013SE69400

PATIENT
  Sex: 0

DRUGS (8)
  1. PROPOFOL [Suspect]
     Indication: INDUCTION OF ANAESTHESIA
     Route: 042
  2. SUCCINYLCHOLINE [Suspect]
     Indication: INDUCTION OF ANAESTHESIA
  3. SUCCINYLCHOLINE [Suspect]
     Indication: MAINTENANCE OF ANAESTHESIA
  4. SUCCINYLCHOLINE [Suspect]
     Indication: INDUCTION OF ANAESTHESIA
  5. SUCCINYLCHOLINE [Suspect]
     Indication: MAINTENANCE OF ANAESTHESIA
  6. ETOMIDATE [Concomitant]
     Indication: INDUCTION OF ANAESTHESIA
  7. PROCAINE [Concomitant]
     Indication: MAINTENANCE OF ANAESTHESIA
  8. FENTANYL [Concomitant]
     Indication: MAINTENANCE OF ANAESTHESIA

REACTIONS (2)
  - Hyperthermia malignant [Unknown]
  - Coma [Not Recovered/Not Resolved]
